FAERS Safety Report 18445920 (Version 1)
Quarter: 2020Q4

REPORT INFORMATION
  Report Type: Spontaneous
  Country: US (occurrence: US)
  Receive Date: 20201029
  Receipt Date: 20201029
  Transmission Date: 20210114
  Serious: No
  Sender: FDA-Public Use
  Company Number: None

PATIENT
  Age: 73 Year
  Sex: Male
  Weight: 82.5 kg

DRUGS (22)
  1. VITAMIN D3 [Concomitant]
     Active Substance: CHOLECALCIFEROL
  2. ACT DRY MOUTH [Concomitant]
  3. DELSYM COUGH/COLD DAYTIME [Concomitant]
  4. WELLBUTRIN SR [Concomitant]
     Active Substance: BUPROPION HYDROCHLORIDE
  5. CLARITIN [Concomitant]
     Active Substance: LORATADINE
  6. BENZONATATE. [Concomitant]
     Active Substance: BENZONATATE
  7. METAMUCIL [Concomitant]
     Active Substance: PLANTAGO SEED
  8. ALEVE [Concomitant]
     Active Substance: NAPROXEN SODIUM
  9. PANTOPRAZOLE SODIUM. [Concomitant]
     Active Substance: PANTOPRAZOLE SODIUM
  10. BIOTIN 5000 [Concomitant]
  11. IMITREX [Concomitant]
     Active Substance: SUMATRIPTAN SUCCINATE
  12. LETROZOLE. [Concomitant]
     Active Substance: LETROZOLE
  13. LIPO FLAVONOID PLUS [Concomitant]
     Active Substance: DIETARY SUPPLEMENT
  14. FISH OIL + D3 [Concomitant]
  15. CYTOMEL [Concomitant]
     Active Substance: LIOTHYRONINE SODIUM
  16. NEULASTA [Concomitant]
     Active Substance: PEGFILGRASTIM
  17. BIOTENE PBF DRY MOUTH [Concomitant]
  18. PEPTO-BISMOL [Concomitant]
     Active Substance: BISMUTH SUBSALICYLATE
  19. KISQALI [Suspect]
     Active Substance: RIBOCICLIB
     Indication: BREAST CANCER
     Route: 048
     Dates: start: 20200923, end: 20201014
  20. VITAMIN C ADULT GUMMIES [Concomitant]
  21. TYLENOL 8HR [Concomitant]
     Active Substance: ACETAMINOPHEN
  22. ALKA-SELTZER [Concomitant]
     Active Substance: ANHYDROUS CITRIC ACID\ASPIRIN\SODIUM BICARBONATE

REACTIONS (2)
  - Therapy interrupted [None]
  - White blood cell count decreased [None]

NARRATIVE: CASE EVENT DATE: 20201020
